FAERS Safety Report 10472391 (Version 2)
Quarter: 2014Q4

REPORT INFORMATION
  Report Type: Spontaneous
  Country: IE (occurrence: IE)
  Receive Date: 20140924
  Receipt Date: 20141012
  Transmission Date: 20150528
  Serious: Yes (Hospitalization)
  Sender: FDA-Public Use
  Company Number: PHFR2014IE006408

PATIENT
  Age: 46 Year
  Sex: Female
  Weight: 75.8 kg

DRUGS (3)
  1. LUSTRAL [Concomitant]
     Active Substance: SERTRALINE HYDROCHLORIDE
     Indication: PRODUCT USED FOR UNKNOWN INDICATION
     Dosage: 150 MG, DAILY
     Route: 048
  2. EPILIM [Concomitant]
     Active Substance: VALPROATE SODIUM
     Indication: PRODUCT USED FOR UNKNOWN INDICATION
     Dosage: 1200 MG, DAILY
     Route: 048
  3. CLOZARIL [Suspect]
     Active Substance: CLOZAPINE
     Indication: SCHIZOPHRENIA
     Dosage: 550 MG, DAILY
     Route: 048
     Dates: start: 20100126

REACTIONS (2)
  - Depressed mood [Recovering/Resolving]
  - Self-injurious ideation [Unknown]

NARRATIVE: CASE EVENT DATE: 20140918
